FAERS Safety Report 16618242 (Version 1)
Quarter: 2019Q3

REPORT INFORMATION
  Report Type: Spontaneous
  Country: US (occurrence: US)
  Receive Date: 20190723
  Receipt Date: 20190723
  Transmission Date: 20191004
  Serious: No
  Sender: FDA-Public Use
  Company Number: US-IMPAX LABORATORIES, LLC-2018-IPXL-02681

PATIENT
  Age: 26 Month
  Sex: Male
  Weight: 13 kg

DRUGS (2)
  1. ADRENACLICK [Suspect]
     Active Substance: EPINEPHRINE
     Indication: URTICARIA
     Dosage: 0.15 MG, SINGLE
     Route: 065
     Dates: start: 20180714, end: 20180714
  2. ADRENACLICK [Suspect]
     Active Substance: EPINEPHRINE
     Indication: GENERALISED ERYTHEMA

REACTIONS (2)
  - Therapeutic response decreased [Unknown]
  - Needle issue [Unknown]

NARRATIVE: CASE EVENT DATE: 20180714
